FAERS Safety Report 5495453-4 (Version None)
Quarter: 2007Q4

REPORT INFORMATION
  Report Type: 
  Country: None (occurrence: None)
  Receive Date: 20071023
  Receipt Date: 20071016
  Transmission Date: 20080405
  Serious: Yes (Other)
  Sender: FDA-Public Use
  Company Number: 019763

PATIENT
  Sex: Female

DRUGS (6)
  1. MEDROXYPROGESTERONE [Suspect]
     Dosage: ORAL
     Route: 048
     Dates: start: 19960101, end: 20041101
  2. CYCRIN [Suspect]
     Dosage: ORAL
     Route: 048
     Dates: start: 19890101, end: 20041101
  3. ESTRATEST [Suspect]
     Dosage: ORAL
     Route: 048
     Dates: start: 19890101, end: 20041101
  4. PREMARIN [Suspect]
     Dosage: ORAL
     Route: 048
     Dates: start: 19890101, end: 20041101
  5. PREMPRO [Suspect]
     Dosage: ORAL
     Route: 048
     Dates: start: 19890101, end: 20041101
  6. PROVERA [Suspect]
     Dosage: ORAL
     Route: 048
     Dates: start: 19890101, end: 20041101

REACTIONS (1)
  - BREAST CANCER FEMALE [None]
